FAERS Safety Report 22192709 (Version 1)
Quarter: 2023Q2

REPORT INFORMATION
  Report Type: Spontaneous
  Country: US (occurrence: None)
  Receive Date: 20230410
  Receipt Date: 20230410
  Transmission Date: 20230722
  Serious: Yes (Disabling, Other)
  Sender: FDA-Public Use
  Company Number: None

PATIENT
  Age: 64 Year
  Sex: Female
  Weight: 70.65 kg

DRUGS (1)
  1. ARTIFICIAL TEARS LUBRICANT EYE DROPS (CARBOXYMETHYLCELLULOSE SODIUM) [Suspect]
     Active Substance: CARBOXYMETHYLCELLULOSE SODIUM
     Indication: Dry eye
     Dosage: OTHER QUANTITY : 02 DROP(S);?FREQUENCY : AS NEEDED;?
     Route: 047

REACTIONS (3)
  - Eye infection [None]
  - Therapy cessation [None]
  - Visual impairment [None]

NARRATIVE: CASE EVENT DATE: 20221201
